FAERS Safety Report 10705507 (Version 2)
Quarter: 2015Q1

REPORT INFORMATION
  Report Type: Report from Study
  Country: FR (occurrence: FR)
  Receive Date: 20150112
  Receipt Date: 20150112
  Transmission Date: 20150721
  Serious: Yes (Death, Hospitalization)
  Sender: FDA-Public Use
  Company Number: FR-ABBVIE-15P-056-1330213-00

PATIENT
  Age: 70 Year
  Sex: Male

DRUGS (2)
  1. DUODOPA [Suspect]
     Active Substance: CARBIDOPA\LEVODOPA
     Indication: PARKINSON^S DISEASE
     Dosage: AM DOSE 13ML; EXTRA 1ML; CONT RATE DURING THE DAY 7.8 ML/H FROM 07 :00AM TO 07 :00PM
     Route: 050
  2. DUODOPA [Suspect]
     Active Substance: CARBIDOPA\LEVODOPA
     Dosage: AM DOSE 12.8ML; EXTRA 3ML; CONT RATE DURING DAY 9 ML/H FROM 07 :00AM TO 07 :00PM
     Route: 050

REACTIONS (4)
  - General physical health deterioration [Fatal]
  - Dysphagia [Recovered/Resolved]
  - On and off phenomenon [Recovered/Resolved]
  - Respiratory failure [Recovered/Resolved]

NARRATIVE: CASE EVENT DATE: 20141217
